FAERS Safety Report 6136724-8 (Version None)
Quarter: 2009Q1

REPORT INFORMATION
  Report Type: 
  Country: None (occurrence: None)
  Receive Date: 20090330
  Receipt Date: 20090327
  Transmission Date: 20090719
  Serious: Yes (Death, Life-Threatening, Hospitalization)
  Sender: FDA-Public Use
  Company Number: PHHO2007MY09835

PATIENT
  Sex: Male

DRUGS (4)
  1. NEORAL [Suspect]
     Indication: RENAL TRANSPLANT
  2. MYFORTIC [Suspect]
     Indication: RENAL TRANSPLANT
  3. NO TREATMENT RECEIVED NOMED [Suspect]
     Indication: RENAL TRANSPLANT
     Dosage: NO TREATMENT
  4. PREDNISOLONE [Concomitant]

REACTIONS (7)
  - CANDIDIASIS [None]
  - EXPLORATIVE LAPAROTOMY [None]
  - HYPOVOLAEMIC SHOCK [None]
  - INTRA-ABDOMINAL HAEMORRHAGE [None]
  - MULTI-ORGAN FAILURE [None]
  - PERITONITIS [None]
  - SEPSIS [None]
